FAERS Safety Report 7790380-1 (Version None)
Quarter: 2011Q3

REPORT INFORMATION
  Report Type: 
  Country: None (occurrence: None)
  Receive Date: 20110930
  Receipt Date: 20110927
  Transmission Date: 20111222
  Serious: Yes (Other)
  Sender: FDA-Public Use
  Company Number: BR-ABBOTT-11P-020-0858580-00

PATIENT
  Sex: Female

DRUGS (5)
  1. DEPAKOTE [Suspect]
     Indication: BRAIN NEOPLASM
  2. DEPAKOTE [Suspect]
     Indication: CONVULSION
     Route: 048
     Dates: start: 19990101
  3. FOLIC ACID [Concomitant]
     Indication: ANAEMIA
     Route: 048
     Dates: start: 20100101
  4. CORTICOSTEROIDS [Suspect]
     Indication: PRODUCT USED FOR UNKNOWN INDICATION
  5. LEVOTHYROXINE SODIUM [Concomitant]
     Indication: HYPOTHYROIDISM
     Route: 048
     Dates: start: 20100101

REACTIONS (5)
  - MEMORY IMPAIRMENT [None]
  - ANAEMIA [None]
  - BRAIN NEOPLASM [None]
  - HYPERTHYROIDISM [None]
  - WEIGHT INCREASED [None]
